FAERS Safety Report 10415057 (Version 2)
Quarter: 2014Q3

REPORT INFORMATION
  Report Type: Spontaneous
  Country: US (occurrence: US)
  Receive Date: 20140828
  Receipt Date: 20140918
  Transmission Date: 20150326
  Serious: Yes (Hospitalization, Disabling)
  Sender: FDA-Public Use
  Company Number: US-JNJFOC-20140817118

PATIENT
  Sex: Female
  Weight: 63.96 kg

DRUGS (4)
  1. FENTANYL. [Suspect]
     Active Substance: FENTANYL
     Indication: PAIN
     Route: 062
     Dates: start: 2012
  2. DURAGESIC [Suspect]
     Active Substance: FENTANYL
     Indication: PAIN
     Route: 062
     Dates: start: 2010, end: 2012
  3. DURAGESIC [Suspect]
     Active Substance: FENTANYL
     Indication: PAIN
     Dosage: 100 UG/HR, 100 UG/HR AND 50 UG/HR
     Route: 062
  4. DURAGESIC [Suspect]
     Active Substance: FENTANYL
     Indication: PAIN
     Dosage: 100 UG/HR AND 100 UG/HR
     Route: 062
     Dates: start: 2010

REACTIONS (19)
  - Drug dose omission [Unknown]
  - Diarrhoea [Recovered/Resolved]
  - Wrong technique in drug usage process [Unknown]
  - Disability [Not Recovered/Not Resolved]
  - Hip fracture [Recovered/Resolved]
  - Ankle fracture [Recovered/Resolved]
  - Abasia [Not Recovered/Not Resolved]
  - Product quality issue [Recovered/Resolved]
  - Device leakage [Unknown]
  - Device dislocation [Recovered/Resolved]
  - Lower limb fracture [Recovered/Resolved]
  - Tibia fracture [Recovered/Resolved]
  - Limb crushing injury [Recovered/Resolved]
  - Incorrect dose administered [Unknown]
  - Wrong technique in drug usage process [Unknown]
  - Product quality issue [Unknown]
  - Formication [Recovered/Resolved]
  - Abdominal pain upper [Recovered/Resolved]
  - Cough [Recovered/Resolved]

NARRATIVE: CASE EVENT DATE: 2010
